FAERS Safety Report 7786589-3 (Version None)
Quarter: 2011Q3

REPORT INFORMATION
  Report Type: 
  Country: None (occurrence: None)
  Receive Date: 20110929
  Receipt Date: 20110919
  Transmission Date: 20111222
  Serious: Yes (Other)
  Sender: FDA-Public Use
  Company Number: AU-ELI_LILLY_AND_COMPANY-AU201109006104

PATIENT
  Sex: Female

DRUGS (3)
  1. CYMBALTA [Suspect]
     Dosage: 60 MG, QOD
  2. CYMBALTA [Suspect]
     Dosage: 30 MG, QOD
  3. CYMBALTA [Suspect]
     Dosage: 60 MG, UNKNOWN

REACTIONS (11)
  - LOSS OF CONSCIOUSNESS [None]
  - DYSKINESIA [None]
  - ADVERSE EVENT [None]
  - FEELING COLD [None]
  - PALPITATIONS [None]
  - FEELING HOT [None]
  - INTENTIONAL DRUG MISUSE [None]
  - ANXIETY [None]
  - DRUG WITHDRAWAL SYNDROME [None]
  - HOT FLUSH [None]
  - HEADACHE [None]
